FAERS Safety Report 11250776 (Version 1)
Quarter: 2015Q3

REPORT INFORMATION
  Report Type: Spontaneous
  Country: US (occurrence: US)
  Receive Date: 20150708
  Receipt Date: 20150708
  Transmission Date: 20151125
  Serious: No
  Sender: FDA-Public Use
  Company Number: US-ELI_LILLY_AND_COMPANY-US201104003785

PATIENT
  Age: 62 Year
  Sex: Female

DRUGS (3)
  1. PROZAC [Suspect]
     Active Substance: FLUOXETINE HYDROCHLORIDE
     Dosage: 10 MG, QD
     Dates: start: 20110405
  2. PROZAC [Suspect]
     Active Substance: FLUOXETINE HYDROCHLORIDE
     Indication: RELAXATION THERAPY
     Dosage: 20 MG, QD
     Dates: start: 20110328, end: 20110404
  3. PROZAC [Suspect]
     Active Substance: FLUOXETINE HYDROCHLORIDE
     Dosage: 10 MG, QOD

REACTIONS (9)
  - Palpitations [Unknown]
  - Chest discomfort [Recovering/Resolving]
  - Vertigo [Unknown]
  - Anxiety [Unknown]
  - Off label use [Recovered/Resolved]
  - Insomnia [Unknown]
  - Headache [Unknown]
  - Feeling abnormal [Unknown]
  - Dizziness [Unknown]

NARRATIVE: CASE EVENT DATE: 20110328
